FAERS Safety Report 7229803 (Version 4)
Quarter: 2013Q1

REPORT INFORMATION
  Report Type: Spontaneous
  Country: US (occurrence: US)
  Receive Date: 20091223
  Receipt Date: 20130204
  Transmission Date: 20140127
  Serious: Yes (Hospitalization, Other)
  Sender: FDA-Public Use
  Company Number: US-ELI_LILLY_AND_COMPANY-US200703004180

PATIENT
  Sex: Male

DRUGS (10)
  1. ZYPREXA [Suspect]
     Indication: DEPRESSION
     Dosage: 10 MG, 3/D
     Dates: start: 2003, end: 2003
  2. ZYPREXA [Suspect]
     Dosage: 2.5 MG, QD
  3. ZYPREXA [Suspect]
     Dosage: 15 MG, QD
  4. ATIVAN [Concomitant]
  5. CLONAZEPAM [Concomitant]
  6. ASPIRIN [Concomitant]
  7. TRAMADOL [Concomitant]
  8. IBUPROFEN [Concomitant]
  9. CYMBALTA [Concomitant]
  10. XANAX [Concomitant]

REACTIONS (19)
  - Pancreatic disorder [Not Recovered/Not Resolved]
  - Diabetic coma [Recovered/Resolved]
  - Suicidal ideation [Unknown]
  - Renal disorder [Unknown]
  - Blood glucose decreased [Recovered/Resolved]
  - Amnesia [Not Recovered/Not Resolved]
  - Type 1 diabetes mellitus [Not Recovered/Not Resolved]
  - Visual acuity reduced [Not Recovered/Not Resolved]
  - Gait disturbance [Not Recovered/Not Resolved]
  - Prescribed overdose [Recovered/Resolved]
  - Hyperglycaemia [Not Recovered/Not Resolved]
  - Hypoaesthesia [Unknown]
  - Vomiting [Recovered/Resolved]
  - Infusion site extravasation [Recovered/Resolved]
  - Injection site pain [Not Recovered/Not Resolved]
  - Agitation [Unknown]
  - Impaired healing [Unknown]
  - Fear [Unknown]
  - Off label use [Unknown]
